FAERS Safety Report 9202006 (Version 2)
Quarter: 2013Q4

REPORT INFORMATION
  Report Type: Spontaneous
  Country: US (occurrence: US)
  Receive Date: 20130401
  Receipt Date: 20131220
  Transmission Date: 20140711
  Serious: Yes (Other)
  Sender: FDA-Public Use
  Company Number: US-BAYER-2013-039699

PATIENT
  Age: 19 Year
  Sex: Female

DRUGS (4)
  1. YAZ [Suspect]
     Dosage: UNK
     Dates: start: 2008, end: 2011
  2. YASMIN [Suspect]
     Dosage: UNK
     Dates: start: 2008, end: 2011
  3. OCELLA [Suspect]
     Dosage: UNK
     Dates: start: 2008, end: 2011
  4. TOPIRAMATE [Concomitant]
     Dosage: 25 MG, UNK

REACTIONS (5)
  - Cholelithiasis [None]
  - Injury [None]
  - Pain [None]
  - Emotional distress [None]
  - Anxiety [None]
